FAERS Safety Report 12374854 (Version 2)
Quarter: 2020Q2

REPORT INFORMATION
  Report Type: Spontaneous
  Country: CA (occurrence: CA)
  Receive Date: 20160517
  Receipt Date: 20200616
  Transmission Date: 20200713
  Serious: Yes (Hospitalization, Other)
  Sender: FDA-Public Use
  Company Number: CA-009507513-1605CAN006067

PATIENT
  Age: 65 Year
  Sex: Female

DRUGS (14)
  1. SINEMET [Interacting]
     Active Substance: CARBIDOPA\LEVODOPA
     Dosage: 3 TABLETS, TID; DURATION: LONG-TERM
     Route: 048
  2. LEVOTHYROXINE SODIUM. [Concomitant]
     Active Substance: LEVOTHYROXINE SODIUM
     Dosage: UNK
     Route: 065
  3. LEVOMEPROMAZINE [Concomitant]
     Active Substance: LEVOMEPROMAZINE
     Dosage: 25 MG/DAY
     Route: 065
  4. SINEMET [Suspect]
     Active Substance: CARBIDOPA\LEVODOPA
     Indication: PARKINSON^S DISEASE
     Dosage: 3 DF, QD
     Route: 048
  5. DIAZEPAM. [Concomitant]
     Active Substance: DIAZEPAM
     Dosage: 5 MG/DAY
     Route: 065
  6. ZOPICLONE [Concomitant]
     Active Substance: ZOPICLONE
     Dosage: 7.5 MG/DAY
     Route: 065
  7. VENLAFAXINE HYDROCHLORIDE. [Interacting]
     Active Substance: VENLAFAXINE HYDROCHLORIDE
     Indication: ANXIETY
  8. BUPROPION HYDROCHLORIDE. [Interacting]
     Active Substance: BUPROPION HYDROCHLORIDE
     Indication: DEPRESSION
     Dosage: 150 MG, QD (1 EVERY DAY(S)), DAILY; DURATION: LONG-TERM
     Route: 048
  9. TRYPTOPHAN [Interacting]
     Active Substance: TRYPTOPHAN
     Indication: INSOMNIA
     Dosage: 3000 MG, QD
     Route: 048
  10. TRYPTOPHAN [Interacting]
     Active Substance: TRYPTOPHAN
     Indication: ANXIETY
  11. VENLAFAXINE HYDROCHLORIDE. [Interacting]
     Active Substance: VENLAFAXINE HYDROCHLORIDE
     Indication: DEPRESSION
     Dosage: 187.5 MG, BID (2 EVERY 1 DAY(S)); STRENGTH: 150MG AND 37.5 MG; DURATION: DOSE INCREASED FROM 300MG/D
     Route: 048
  12. TRYPTOPHAN [Interacting]
     Active Substance: TRYPTOPHAN
     Indication: DEPRESSION
     Dosage: 3000 MG, QHS; DURATION: DOSE INCREASED FROM 2-3G QHS PRN TO 3G QHS REGULARY X 1 MONTH
     Route: 048
  13. BUPROPION HYDROCHLORIDE. [Interacting]
     Active Substance: BUPROPION HYDROCHLORIDE
     Indication: ANXIETY
  14. PANTOPRAZOLE [Concomitant]
     Active Substance: PANTOPRAZOLE
     Dosage: UNK
     Route: 065

REACTIONS (10)
  - Dyspnoea [Recovering/Resolving]
  - Paraesthesia [Recovering/Resolving]
  - Tachycardia [Recovering/Resolving]
  - Unresponsive to stimuli [Recovering/Resolving]
  - Lactic acidosis [Recovering/Resolving]
  - Pulse absent [Recovering/Resolving]
  - Loss of consciousness [Recovering/Resolving]
  - Drug interaction [Recovering/Resolving]
  - Pain [Recovering/Resolving]
  - Foaming at mouth [Recovering/Resolving]

NARRATIVE: CASE EVENT DATE: 20151217
